FAERS Safety Report 6000311-2 (Version None)
Quarter: 2008Q4

REPORT INFORMATION
  Report Type: 
  Country: None (occurrence: None)
  Receive Date: 20081211
  Receipt Date: 20081211
  Transmission Date: 20090506
  Serious: Yes (Other)
  Sender: FDA-Public Use
  Company Number: None

PATIENT
  Age: 26 Year
  Sex: Male
  Weight: 90 kg

DRUGS (1)
  1. AMBIEN [Suspect]
     Indication: NARCOLEPSY
     Dosage: QHS PO
     Route: 048
     Dates: start: 20080701, end: 20081209

REACTIONS (3)
  - ABNORMAL BEHAVIOUR [None]
  - ROAD TRAFFIC ACCIDENT [None]
  - SOMNAMBULISM [None]
